FAERS Safety Report 4338716-8 (Version None)
Quarter: 2004Q2

REPORT INFORMATION
  Report Type: 
  Country: None (occurrence: None)
  Receive Date: 20040414
  Receipt Date: 20040227
  Transmission Date: 20050107
  Serious: Yes (Hospitalization)
  Sender: FDA-Public Use
  Company Number: FR-ROCHE-360286

PATIENT
  Age: 23 Year
  Sex: Female
  Weight: 40 kg

DRUGS (13)
  1. CELLCEPT [Suspect]
     Route: 048
     Dates: start: 20040115
  2. CELLCEPT [Suspect]
     Route: 048
  3. PROGRAF [Concomitant]
  4. SIMULECT [Concomitant]
  5. PREDNISONE [Concomitant]
  6. SOLU-MEDROL [Concomitant]
  7. TENORMIN [Concomitant]
  8. MOPRAL [Concomitant]
  9. BACTRIM [Concomitant]
     Dosage: 1 DOSEFORM PER DAY
  10. CYMEVAN [Concomitant]
  11. SPECIAFOLDINE [Concomitant]
  12. STEROGYL [Concomitant]
     Dosage: 2 DROPS
  13. NEORECORMON [Concomitant]

REACTIONS (2)
  - APLASIA PURE RED CELL [None]
  - MENORRHAGIA [None]
